FAERS Safety Report 4898823-8 (Version None)
Quarter: 2006Q1

REPORT INFORMATION
  Report Type: 
  Country: None (occurrence: None)
  Receive Date: 20060202
  Receipt Date: 20060131
  Transmission Date: 20060701
  Serious: Yes (Life-Threatening, Disabling, Other)
  Sender: FDA-Public Use
  Company Number: US-GLAXOSMITHKLINE-A0591744A

PATIENT
  Age: 51 Year
  Sex: Male

DRUGS (5)
  1. AVANDIA [Suspect]
     Dosage: 4MG TWICE PER DAY
     Route: 048
     Dates: start: 20050101
  2. AVANDAMET [Suspect]
  3. METFORMIN [Suspect]
     Dosage: 500MG TWICE PER DAY
     Dates: start: 20050101
  4. VYTORIN [Concomitant]
  5. ALTACE [Concomitant]

REACTIONS (2)
  - BLOOD GLUCOSE INCREASED [None]
  - DRUG INEFFECTIVE [None]
